FAERS Safety Report 14123410 (Version 1)
Quarter: 2017Q4

REPORT INFORMATION
  Report Type: Report from Study
  Country: JP (occurrence: JP)
  Receive Date: 20171025
  Receipt Date: 20171025
  Transmission Date: 20180321
  Serious: Yes (Death)
  Sender: FDA-Public Use
  Company Number: JP-ROCHE-1634299

PATIENT
  Age: 51 Year
  Sex: Female

DRUGS (2)
  1. PACLITAXEL. [Suspect]
     Active Substance: PACLITAXEL
     Indication: BREAST CANCER
     Route: 041
     Dates: start: 20140317, end: 20140421
  2. BEVACIZUMAB. [Suspect]
     Active Substance: BEVACIZUMAB
     Indication: BREAST CANCER
     Route: 041
     Dates: start: 20140317, end: 20140421

REACTIONS (13)
  - Epistaxis [Recovering/Resolving]
  - White blood cell count increased [Recovering/Resolving]
  - Haemoglobin decreased [Fatal]
  - Platelet count decreased [Recovering/Resolving]
  - Gamma-glutamyltransferase increased [Not Recovered/Not Resolved]
  - Portal hypertension [Fatal]
  - Hepatic failure [Fatal]
  - Gastrointestinal haemorrhage [Fatal]
  - Neuropathy peripheral [Recovering/Resolving]
  - Blood albumin decreased [Unknown]
  - Oesophageal varices haemorrhage [Fatal]
  - Neutrophil count decreased [Not Recovered/Not Resolved]
  - Hypertension [Unknown]

NARRATIVE: CASE EVENT DATE: 20140321
